FAERS Safety Report 16896055 (Version 1)
Quarter: 2019Q4

REPORT INFORMATION
  Report Type: Spontaneous
  Country: US (occurrence: US)
  Receive Date: 20190814
  Receipt Date: 20190814
  Transmission Date: 20200122
  Serious: No
  Sender: FDA-Public Use
  Company Number: None

PATIENT
  Age: 31 Year
  Sex: Female

DRUGS (1)
  1. SIMPONI [Suspect]
     Active Substance: GOLIMUMAB
     Dates: start: 2018, end: 2018

REACTIONS (3)
  - Therapy cessation [None]
  - Abdominal pain upper [None]
  - Insurance issue [None]

NARRATIVE: CASE EVENT DATE: 20180814
